FAERS Safety Report 4354802-0 (Version None)
Quarter: 2004Q2

REPORT INFORMATION
  Report Type: 
  Country: None (occurrence: None)
  Receive Date: 20040507
  Receipt Date: 20040422
  Transmission Date: 20050107
  Serious: Yes (Other)
  Sender: FDA-Public Use
  Company Number: PHBS2004TR05455

PATIENT
  Age: 36 Year
  Sex: Female

DRUGS (2)
  1. ZELMAC [Suspect]
     Indication: IRRITABLE BOWEL SYNDROME
     Route: 065
  2. PROZAC [Concomitant]
     Route: 065

REACTIONS (5)
  - ANAEMIA MEGALOBLASTIC [None]
  - CONTUSION [None]
  - DIARRHOEA [None]
  - HYPOTENSION [None]
  - LIVER FUNCTION TEST ABNORMAL [None]
